FAERS Safety Report 5906968-6 (Version None)
Quarter: 2008Q4

REPORT INFORMATION
  Report Type: 
  Country: None (occurrence: None)
  Receive Date: 20081003
  Receipt Date: 20080919
  Transmission Date: 20090506
  Serious: Yes (Other)
  Sender: FDA-Public Use
  Company Number: US-JNJFOC-20080905454

PATIENT
  Sex: Female
  Weight: 53.98 kg

DRUGS (3)
  1. RISPERDAL [Suspect]
     Indication: AUTISM
     Route: 048
  2. DEPAKOTE [Suspect]
     Indication: AUTISM
     Route: 048
  3. BIRTH CONTROL PILL [Concomitant]
     Route: 065

REACTIONS (4)
  - AGGRESSION [None]
  - INTENTIONAL SELF-INJURY [None]
  - MOOD SWINGS [None]
  - SCREAMING [None]
